FAERS Safety Report 20490939 (Version 1)
Quarter: 2022Q1

REPORT INFORMATION
  Report Type: Report from Study
  Country: US (occurrence: US)
  Receive Date: 20220218
  Receipt Date: 20220218
  Transmission Date: 20220424
  Serious: Yes (Hospitalization, Other)
  Sender: FDA-Public Use
  Company Number: US-AMGEN-USASL2022025038

PATIENT
  Age: 70 Year
  Sex: Male

DRUGS (1)
  1. MVASI [Suspect]
     Active Substance: BEVACIZUMAB-AWWB
     Indication: Glioblastoma
     Dosage: UNK UNK, Q2WK
     Route: 065

REACTIONS (3)
  - Infusion site extravasation [Unknown]
  - Septic shock [Unknown]
  - Incorrect route of product administration [Unknown]
